FAERS Safety Report 7404618-3 (Version None)
Quarter: 2011Q2

REPORT INFORMATION
  Report Type: 
  Country: None (occurrence: None)
  Receive Date: 20110411
  Receipt Date: 20110401
  Transmission Date: 20111010
  Serious: Yes (Hospitalization)
  Sender: FDA-Public Use
  Company Number: US-BIOGENIDEC-2011BI008090

PATIENT
  Age: 55 Year
  Sex: Male

DRUGS (4)
  1. OMEPRAZOLE [Concomitant]
  2. AMYTRIPTYLINE [Concomitant]
  3. SERTRALINE HYDROCHLORIDE [Concomitant]
  4. AVONEX [Suspect]
     Indication: MULTIPLE SCLEROSIS
     Route: 030
     Dates: start: 20041008

REACTIONS (8)
  - LOGORRHOEA [None]
  - MALNUTRITION [None]
  - BALANCE DISORDER [None]
  - PAIN IN EXTREMITY [None]
  - MYOCARDIAL INFARCTION [None]
  - MUSCULOSKELETAL DISORDER [None]
  - BLINDNESS UNILATERAL [None]
  - COGNITIVE DISORDER [None]
